FAERS Safety Report 7948244-6 (Version None)
Quarter: 2011Q4

REPORT INFORMATION
  Report Type: 
  Country: None (occurrence: None)
  Receive Date: 20111125
  Receipt Date: 20111109
  Transmission Date: 20120403
  Serious: Yes (Hospitalization)
  Sender: FDA-Public Use
  Company Number: COL_10272_2011

PATIENT
  Sex: Female

DRUGS (1)
  1. PLAX SOFT MINT MOUTHRINSE 500ML [Suspect]
     Indication: DENTAL DISORDER PROPHYLAXIS
     Dosage: (ORAL)
     Route: 048

REACTIONS (2)
  - DRUG HYPERSENSITIVITY [None]
  - IMPAIRED WORK ABILITY [None]
